FAERS Safety Report 6887744-7 (Version None)
Quarter: 2010Q3

REPORT INFORMATION
  Report Type: 
  Country: None (occurrence: None)
  Receive Date: 20100730
  Receipt Date: 20100723
  Transmission Date: 20110219
  Serious: Yes (Other)
  Sender: FDA-Public Use
  Company Number: FR-ROCHE-717245

PATIENT
  Sex: Female
  Weight: 12 kg

DRUGS (2)
  1. VALIUM [Suspect]
     Indication: FEBRILE CONVULSION
     Dosage: STRENGTH: 10 MG/2ML; DOSE: 2.16 MG/KG; ROUTE: INTRA-RECTAL
     Route: 050
     Dates: start: 20100701, end: 20100701
  2. PRODILANTIN [Suspect]
     Dosage: DOSE: 20 MG/KG
     Route: 042
     Dates: start: 20100701, end: 20100701

REACTIONS (2)
  - ACCIDENTAL OVERDOSE [None]
  - CONVULSION [None]
